FAERS Safety Report 5719876-0 (Version None)
Quarter: 2008Q2

REPORT INFORMATION
  Report Type: 
  Country: None (occurrence: None)
  Receive Date: 20080428
  Receipt Date: 20080415
  Transmission Date: 20081010
  Serious: Yes (Hospitalization)
  Sender: FDA-Public Use
  Company Number: IE-AMGEN-UK267799

PATIENT
  Sex: Male
  Weight: 70 kg

DRUGS (3)
  1. PANITUMUMAB [Suspect]
     Indication: SQUAMOUS CELL CARCINOMA
     Route: 042
     Dates: start: 20080220
  2. CISPLATIN [Concomitant]
     Route: 042
     Dates: start: 20080220
  3. FLUOROURACIL [Concomitant]
     Route: 042
     Dates: start: 20080220

REACTIONS (5)
  - ATRIAL FIBRILLATION [None]
  - BLOOD PRESSURE SYSTOLIC INCREASED [None]
  - BLOOD UREA INCREASED [None]
  - DIARRHOEA [None]
  - SYNCOPE [None]
